FAERS Safety Report 24725376 (Version 4)
Quarter: 2025Q1

REPORT INFORMATION
  Report Type: Report from Study
  Country: AR (occurrence: AR)
  Receive Date: 20241212
  Receipt Date: 20250113
  Transmission Date: 20250409
  Serious: Yes (Death, Other)
  Sender: ROCHE
  Company Number: AR-ROCHE-10000151907

PATIENT
  Age: 62 Year
  Sex: Male

DRUGS (25)
  1. RITUXIMAB [Suspect]
     Active Substance: RITUXIMAB
     Indication: Diffuse large B-cell lymphoma
     Route: 065
     Dates: start: 20190201, end: 20190401
  2. RITUXIMAB [Suspect]
     Active Substance: RITUXIMAB
     Route: 065
     Dates: start: 202408, end: 202411
  3. RITUXIMAB [Suspect]
     Active Substance: RITUXIMAB
     Route: 065
     Dates: start: 20180801, end: 20181001
  4. RITUXIMAB [Suspect]
     Active Substance: RITUXIMAB
     Route: 065
     Dates: start: 20181101, end: 20190101
  5. RITUXIMAB [Suspect]
     Active Substance: RITUXIMAB
     Route: 065
     Dates: start: 201908, end: 202001
  6. POLIVY [Suspect]
     Active Substance: POLATUZUMAB VEDOTIN-PIIQ
     Indication: Diffuse large B-cell lymphoma
     Route: 065
     Dates: start: 20190801, end: 20200101
  7. POLIVY [Suspect]
     Active Substance: POLATUZUMAB VEDOTIN-PIIQ
     Route: 065
     Dates: start: 201908, end: 202001
  8. CYCLOPHOSPHAMIDE [Concomitant]
     Active Substance: CYCLOPHOSPHAMIDE
     Indication: Diffuse large B-cell lymphoma
     Dates: start: 20181101, end: 20190101
  9. CYCLOPHOSPHAMIDE [Concomitant]
     Active Substance: CYCLOPHOSPHAMIDE
     Dates: start: 20180801, end: 20181001
  10. DOXORUBICIN HYDROCHLORIDE [Concomitant]
     Active Substance: DOXORUBICIN HYDROCHLORIDE
     Indication: Diffuse large B-cell lymphoma
     Dates: start: 20181101, end: 20190101
  11. DOXORUBICIN HYDROCHLORIDE [Concomitant]
     Active Substance: DOXORUBICIN HYDROCHLORIDE
     Dates: start: 20180801, end: 20181001
  12. VINCRISTINE SULFATE [Concomitant]
     Active Substance: VINCRISTINE SULFATE
     Indication: Diffuse large B-cell lymphoma
     Dates: start: 20181101, end: 20190101
  13. VINCRISTINE SULFATE [Concomitant]
     Active Substance: VINCRISTINE SULFATE
     Dates: start: 20180801, end: 20181001
  14. PREDNISONE [Concomitant]
     Active Substance: PREDNISONE
     Indication: Diffuse large B-cell lymphoma
     Dates: start: 20181101, end: 20190101
  15. PREDNISONE [Concomitant]
     Active Substance: PREDNISONE
     Dates: start: 20180801, end: 20181001
  16. ETOPOSIDE PHOSPHATE [Concomitant]
     Active Substance: ETOPOSIDE PHOSPHATE
     Indication: Diffuse large B-cell lymphoma
     Dates: start: 20181101, end: 20190101
  17. ETOPOSIDE PHOSPHATE [Concomitant]
     Active Substance: ETOPOSIDE PHOSPHATE
     Dates: start: 20190201, end: 20190401
  18. METHYLPREDNISOLONE [Concomitant]
     Active Substance: METHYLPREDNISOLONE
     Indication: Diffuse large B-cell lymphoma
     Dates: start: 20190201, end: 20190401
  19. CYTARABINE [Concomitant]
     Active Substance: CYTARABINE
     Dates: start: 20190201, end: 20190401
  20. CISPLATIN [Concomitant]
     Active Substance: CISPLATIN
     Dates: start: 20190201, end: 20190401
  21. BENDAMUSTINE [Concomitant]
     Active Substance: BENDAMUSTINE
     Indication: Diffuse large B-cell lymphoma
     Dates: start: 2019
  22. BENDAMUSTINE [Concomitant]
     Active Substance: BENDAMUSTINE
     Dates: start: 201908, end: 202001
  23. GEMCITABINE [Concomitant]
     Active Substance: GEMCITABINE
     Indication: Diffuse large B-cell lymphoma
     Dates: start: 20240801, end: 20241101
  24. VINORELBINE [Concomitant]
     Active Substance: VINORELBINE TARTRATE
     Indication: Diffuse large B-cell lymphoma
     Dates: start: 20240801, end: 20241101
  25. DOXORUBICIN [Concomitant]
     Active Substance: DOXORUBICIN
     Dates: start: 20240801, end: 20241101

REACTIONS (16)
  - Therapy non-responder [Unknown]
  - Ill-defined disorder [Unknown]
  - CD4 lymphocytes decreased [Unknown]
  - Disease recurrence [Unknown]
  - Haematocrit increased [Unknown]
  - Haemoglobin decreased [Unknown]
  - Anisocytosis [Unknown]
  - Platelet count increased [Unknown]
  - Red cell distribution width increased [Unknown]
  - Basophil count increased [Unknown]
  - White blood cell count decreased [Unknown]
  - Red blood cell count decreased [Unknown]
  - Hypogammaglobulinaemia [Unknown]
  - Blood lactate dehydrogenase abnormal [Unknown]
  - Blood chloride decreased [Unknown]
  - Disease progression [Fatal]

NARRATIVE: CASE EVENT DATE: 20240101
